FAERS Safety Report 12073966 (Version 1)
Quarter: 2016Q1

REPORT INFORMATION
  Report Type: Report from Study
  Country: CA (occurrence: CA)
  Receive Date: 20160212
  Receipt Date: 20160212
  Transmission Date: 20160526
  Serious: Yes (Other)
  Sender: FDA-Public Use
  Company Number: CA-JNJFOC-20151204190

PATIENT
  Age: 17 Year
  Sex: Female
  Weight: 94.5 kg

DRUGS (1)
  1. REMICADE [Suspect]
     Active Substance: INFLIXIMAB
     Indication: JUVENILE IDIOPATHIC ARTHRITIS
     Dosage: 10 TH INFUSION
     Route: 042
     Dates: end: 20160128

REACTIONS (4)
  - Skin plaque [Unknown]
  - Psoriasis [Unknown]
  - Cough [Unknown]
  - Influenza [Unknown]

NARRATIVE: CASE EVENT DATE: 20151117
